FAERS Safety Report 12924705 (Version 2)
Quarter: 2016Q4

REPORT INFORMATION
  Report Type: Report from Study
  Country: US (occurrence: US)
  Receive Date: 20161109
  Receipt Date: 20161128
  Transmission Date: 20170207
  Serious: Yes (Death, Hospitalization, Other)
  Sender: FDA-Public Use
  Company Number: US-GILEAD-2016-0242357

PATIENT
  Age: 83 Year
  Sex: Male

DRUGS (18)
  1. LISINOPRIL. [Concomitant]
     Active Substance: LISINOPRIL
  2. CLOPIDOGREL [Concomitant]
     Active Substance: CLOPIDOGREL BISULFATE
  3. XARELTO [Concomitant]
     Active Substance: RIVAROXABAN
  4. LANTUS [Concomitant]
     Active Substance: INSULIN GLARGINE
  5. MORPHINE [Concomitant]
     Active Substance: MORPHINE
  6. AMBRISENTAN [Suspect]
     Active Substance: AMBRISENTAN
     Indication: PULMONARY ARTERIAL HYPERTENSION
     Dosage: 10 MG, QD
     Route: 065
     Dates: start: 20160202, end: 201611
  7. MONTELUKAST [Concomitant]
     Active Substance: MONTELUKAST SODIUM
  8. FINASTERIDE. [Concomitant]
     Active Substance: FINASTERIDE
  9. SIMVASTATIN. [Concomitant]
     Active Substance: SIMVASTATIN
  10. SILDENAFIL. [Concomitant]
     Active Substance: SILDENAFIL
  11. HYOSCYAMINE. [Concomitant]
     Active Substance: HYOSCYAMINE
  12. WARFARIN [Concomitant]
     Active Substance: WARFARIN
  13. FUROSEMIDE. [Concomitant]
     Active Substance: FUROSEMIDE
  14. TUDORZA PRESSAIR [Concomitant]
     Active Substance: ACLIDINIUM BROMIDE
  15. LORAZEPAM. [Concomitant]
     Active Substance: LORAZEPAM
  16. SENNA                              /00142201/ [Concomitant]
     Active Substance: SENNA LEAF
  17. METFORMIN [Concomitant]
     Active Substance: METFORMIN HYDROCHLORIDE
  18. TAMSULOSIN [Concomitant]
     Active Substance: TAMSULOSIN

REACTIONS (3)
  - Blood pressure decreased [Unknown]
  - Death [Fatal]
  - Ventricular tachycardia [Recovering/Resolving]

NARRATIVE: CASE EVENT DATE: 20161029
